FAERS Safety Report 5443597-5 (Version None)
Quarter: 2007Q3

REPORT INFORMATION
  Report Type: 
  Country: None (occurrence: None)
  Receive Date: 20070730
  Receipt Date: 20070202
  Transmission Date: 20080115
  Serious: Yes (Death)
  Sender: FDA-Public Use
  Company Number: 236047

PATIENT
  Age: 59 Year
  Sex: Male
  Weight: 123 kg

DRUGS (17)
  1. RITUXAN [Suspect]
     Indication: CHRONIC LYMPHOCYTIC LEUKAEMIA
     Dosage: 3 MG, SINGLE, SUBCUTANEOUS; 10 MG, SINGLE, SUBCUTANEOUS; 30 MG, 3/WEEK, SUBCUTANEOUS
     Route: 058
     Dates: start: 20030301, end: 20030801
  2. RITUXAN [Suspect]
     Indication: CHRONIC LYMPHOCYTIC LEUKAEMIA
     Dosage: 3 MG, SINGLE, SUBCUTANEOUS; 10 MG, SINGLE, SUBCUTANEOUS; 30 MG, 3/WEEK, SUBCUTANEOUS
     Route: 058
     Dates: start: 20031007, end: 20031007
  3. RITUXAN [Suspect]
     Indication: CHRONIC LYMPHOCYTIC LEUKAEMIA
     Dosage: 3 MG, SINGLE, SUBCUTANEOUS; 10 MG, SINGLE, SUBCUTANEOUS; 30 MG, 3/WEEK, SUBCUTANEOUS
     Route: 058
     Dates: start: 20031008, end: 20031008
  4. CAMPATH [Suspect]
     Indication: CHRONIC LYMPHOCYTIC LEUKAEMIA
     Dosage: 3 MG, SINGLE, SUBCUTANEOUS
     Route: 058
     Dates: start: 20031006, end: 20031006
  5. DECADRON [Concomitant]
  6. HYDROCHLOROTHIAZIDE [Concomitant]
  7. CITALOPRAM HYDROBROMIDE [Concomitant]
  8. MS CONTIN [Concomitant]
  9. PROTONIX [Concomitant]
  10. BENADRYL [Concomitant]
  11. TYLENOL (CAPLET) [Concomitant]
  12. ACYCLOVIR [Concomitant]
  13. BACTRIM DS [Concomitant]
  14. CYCLOPHOSPHAMIDE [Concomitant]
  15. DOXORUBICIN HCL [Concomitant]
  16. ONCOVIN [Concomitant]
  17. PREDNISONE [Concomitant]

REACTIONS (2)
  - INJECTION SITE REACTION [None]
  - PROGRESSIVE MULTIFOCAL LEUKOENCEPHALOPATHY [None]
